FAERS Safety Report 23415320 (Version 1)
Quarter: 2024Q1

REPORT INFORMATION
  Report Type: Spontaneous
  Country: CL (occurrence: CL)
  Receive Date: 20240118
  Receipt Date: 20240118
  Transmission Date: 20240410
  Serious: No
  Sender: FDA-Public Use
  Company Number: CL-ALKEM LABORATORIES LIMITED-CL-ALKEM-2023-12883

PATIENT
  Age: 14 Year
  Sex: Female

DRUGS (15)
  1. NIFEDIPINE [Suspect]
     Active Substance: NIFEDIPINE
     Indication: Prophylaxis
     Dosage: 20 MILLIGRAM, TID (EVERY 20 MINUTES FOR THREE TIMES)
     Route: 048
  2. NIFEDIPINE [Suspect]
     Active Substance: NIFEDIPINE
     Dosage: 10 MILLIGRAM, QID (EVERY 6 HOURS)
     Route: 048
  3. HYDROCORTISONE [Suspect]
     Active Substance: HYDROCORTISONE
     Indication: Septic shock
     Dosage: 1000 MILLIGRAM
     Route: 065
  4. HYDROCORTISONE [Suspect]
     Active Substance: HYDROCORTISONE
     Indication: Escherichia test positive
     Dosage: 50 MILLIGRAM, TID (EVERY EIGHT HOURS)
     Route: 065
  5. HYDROCORTISONE [Suspect]
     Active Substance: HYDROCORTISONE
     Indication: Multiple organ dysfunction syndrome
  6. BETAMETHASONE [Suspect]
     Active Substance: BETAMETHASONE\BETAMETHASONE DIPROPIONATE
     Indication: Abnormal organ maturation
     Dosage: 6 MILLIGRAM (TWO DOSES)
     Route: 065
  7. CEFAZOLIN [Suspect]
     Active Substance: CEFAZOLIN
     Indication: Abnormal organ maturation
     Dosage: 1 GRAM, TID (EVERY 8 HOURS FOR 48 HOURS)
     Route: 042
  8. MAGNESIUM SULFATE [Suspect]
     Active Substance: MAGNESIUM SULFATE\MAGNESIUM SULFATE HEPTAHYDRATE
     Indication: Prophylaxis
     Dosage: 5 GRAM
     Route: 065
  9. MAGNESIUM SULFATE [Suspect]
     Active Substance: MAGNESIUM SULFATE\MAGNESIUM SULFATE HEPTAHYDRATE
     Dosage: 1 GRAM, TID (EVERY 8 HOURS)
     Route: 065
  10. MEROPENEM [Suspect]
     Active Substance: MEROPENEM
     Indication: Septic shock
     Dosage: 1 GRAM, BID
     Route: 065
  11. MEROPENEM [Suspect]
     Active Substance: MEROPENEM
     Indication: Escherichia test positive
     Dosage: 1 GRAM, QD (EVERY 24 HOURS)
     Route: 065
  12. MEROPENEM [Suspect]
     Active Substance: MEROPENEM
     Indication: Multiple organ dysfunction syndrome
  13. NOREPINEPHRINE [Suspect]
     Active Substance: NOREPINEPHRINE
     Indication: Septic shock
     Dosage: UNK, (UP TO 1.5 MICRO-GRAMS PER KILOGRAM PER MINUTE)
     Route: 065
  14. NOREPINEPHRINE [Suspect]
     Active Substance: NOREPINEPHRINE
     Indication: Escherichia test positive
  15. NOREPINEPHRINE [Suspect]
     Active Substance: NOREPINEPHRINE
     Indication: Multiple organ dysfunction syndrome

REACTIONS (2)
  - Premature delivery [Unknown]
  - Exposure during pregnancy [Unknown]
